FAERS Safety Report 15940811 (Version 1)
Quarter: 2019Q1

REPORT INFORMATION
  Report Type: Spontaneous
  Country: CN (occurrence: CN)
  Receive Date: 20190208
  Receipt Date: 20190208
  Transmission Date: 20190417
  Serious: Yes (Other)
  Sender: FDA-Public Use
  Company Number: CN-009507513-1902CHN002038

PATIENT
  Age: 91 Year
  Sex: Female

DRUGS (1)
  1. JANUVIA [Suspect]
     Active Substance: SITAGLIPTIN PHOSPHATE
     Dosage: 1 TABLET, QD
     Route: 048
     Dates: start: 20181130, end: 20181216

REACTIONS (6)
  - Alanine aminotransferase increased [None]
  - Nausea [None]
  - Aspartate aminotransferase increased [None]
  - Asthenia [None]
  - Hepatic function abnormal [Recovering/Resolving]
  - Vomiting [None]

NARRATIVE: CASE EVENT DATE: 20181217
